FAERS Safety Report 15453088 (Version 1)
Quarter: 2018Q4

REPORT INFORMATION
  Report Type: Report from Study
  Country: DO (occurrence: DO)
  Receive Date: 20181001
  Receipt Date: 20181001
  Transmission Date: 20190204
  Serious: Yes (Other)
  Sender: FDA-Public Use
  Company Number: DO-SA-2018SA265176

PATIENT
  Age: 70 Year
  Sex: Female

DRUGS (2)
  1. ENANTYUM [Concomitant]
     Active Substance: DEXKETOPROFEN TROMETAMOL
     Indication: ARTHRALGIA
     Dosage: UNK
     Route: 048
     Dates: start: 20180803
  2. IRBESARTAN. [Suspect]
     Active Substance: IRBESARTAN
     Indication: HYPERTENSION
     Dosage: 150 MG, QD
     Route: 048
     Dates: start: 2015

REACTIONS (4)
  - Cataract [Recovered/Resolved]
  - Fall [Unknown]
  - Gastritis [Unknown]
  - Abdominal pain upper [Unknown]

NARRATIVE: CASE EVENT DATE: 20180803
